FAERS Safety Report 9648539 (Version 1)
Quarter: 2013Q4

REPORT INFORMATION
  Report Type: Other
  Country: US (occurrence: US)
  Receive Date: 20131028
  Receipt Date: 20131028
  Transmission Date: 20140711
  Serious: Yes (Death)
  Sender: FDA-Public Use
  Company Number: US-FRI-1000050400

PATIENT
  Sex: 0

DRUGS (3)
  1. DILTIAZEM [Suspect]
  2. DIGOXIN [Suspect]
  3. WARFARIN [Suspect]

REACTIONS (1)
  - Death [Fatal]
